FAERS Safety Report 8478998-4 (Version None)
Quarter: 2012Q2

REPORT INFORMATION
  Report Type: 
  Country: None (occurrence: None)
  Receive Date: 20120629
  Receipt Date: 20120622
  Transmission Date: 20120825
  Serious: Yes (Other)
  Sender: FDA-Public Use
  Company Number: JP-MERCK-1206USA04765

PATIENT
  Age: 52 Year
  Sex: Male

DRUGS (12)
  1. DECADRON [Suspect]
     Route: 065
  2. DECADRON [Suspect]
     Dosage: DIVIDED DOSE FREQUENCY U
     Route: 065
  3. LINEZOLID [Concomitant]
     Route: 048
  4. DECADRON [Suspect]
     Dosage: DIVIDED DOSE FREQUENCY U
     Route: 065
  5. DECADRON [Suspect]
     Dosage: DIVIDED DOSE FREQUENCY U
     Route: 065
  6. DECADRON [Suspect]
     Dosage: DIVIDED DOSE FREQUENCY U
     Route: 065
  7. CEFTRIAXONE SODIUM [Concomitant]
     Route: 051
  8. DECADRON [Suspect]
     Dosage: FROM DAY 40 TO DAY 109
     Route: 065
  9. MEROPENEM [Concomitant]
     Route: 051
  10. DECADRON [Suspect]
     Dosage: DIVIDED DOSE FREQUENCY U
     Route: 065
  11. DECADRON [Suspect]
     Dosage: DIVIDED DOSE FREQUENCY U
     Route: 065
  12. MEROPENEM [Concomitant]
     Dosage: DIVIDED DOSE FREQUENCY U
     Route: 051

REACTIONS (1)
  - ISCHAEMIC STROKE [None]
